FAERS Safety Report 15844203 (Version 2)
Quarter: 2019Q1

REPORT INFORMATION
  Report Type: Spontaneous
  Country: US (occurrence: US)
  Receive Date: 20190118
  Receipt Date: 20190304
  Transmission Date: 20190417
  Serious: Yes (Life-Threatening, Hospitalization, Other)
  Sender: FDA-Public Use
  Company Number: US-ASTRAZENECA-2019SE06970

PATIENT
  Age: 58 Year
  Sex: Male

DRUGS (8)
  1. NEURONTIN [Concomitant]
     Active Substance: GABAPENTIN
     Dosage: 300MG CAPSULE, TAKES THAT 3 TIMES DAILY
     Route: 048
  2. SEROQUEL [Suspect]
     Active Substance: QUETIAPINE FUMARATE
     Indication: SLEEP DISORDER
     Dosage: 100MG, TAKE 3 TABLETS, BY MOUTH AT NIGHT
     Route: 048
  3. SEROQUEL [Interacting]
     Active Substance: QUETIAPINE FUMARATE
     Indication: BIPOLAR DISORDER
     Dosage: 100MG, TAKE 3 TABLETS, BY MOUTH AT NIGHT
     Route: 048
  4. METOPROLOL TARTRATE. [Suspect]
     Active Substance: METOPROLOL TARTRATE
     Indication: CARDIAC DISORDER
     Dosage: 75MG TWICE A DAY
     Route: 048
  5. AMIODARONE [Interacting]
     Active Substance: AMIODARONE
     Indication: ARRHYTHMIA
     Dosage: 200MG, TAKE 2 TABLETS TWICE DAILY, BY MOUTH
     Route: 065
  6. DEPAKOTE [Concomitant]
     Active Substance: DIVALPROEX SODIUM
     Indication: AFFECTIVE DISORDER
     Dosage: 250 MG, TAKE 5 TABLETS AT NIGHT BY MOUTH
  7. MORPHINE [Interacting]
     Active Substance: MORPHINE
     Indication: CHEST PAIN
     Route: 042
  8. BABY ASPIRIN [Concomitant]
     Active Substance: ASPIRIN

REACTIONS (6)
  - Suffocation feeling [Unknown]
  - Drug interaction [Unknown]
  - Cardiac arrest [Unknown]
  - Hypersensitivity [Unknown]
  - Dyspnoea [Unknown]
  - Vision blurred [Unknown]
